FAERS Safety Report 10017536 (Version 2)
Quarter: 2014Q2

REPORT INFORMATION
  Report Type: Spontaneous
  Country: CN (occurrence: CN)
  Receive Date: 20140318
  Receipt Date: 20140402
  Transmission Date: 20141212
  Serious: Yes (Other)
  Sender: FDA-Public Use
  Company Number: CN-ROCHE-1366585

PATIENT
  Age: 43 Year
  Sex: Female
  Weight: 60 kg

DRUGS (2)
  1. HERCEPTIN [Suspect]
     Indication: HER-2 POSITIVE BREAST CANCER
     Dosage: INITIAL DOSAGE WAS 480MG
     Route: 041
     Dates: start: 20140205, end: 20140310
  2. DOCETAXEL [Concomitant]
     Indication: HER-2 POSITIVE BREAST CANCER
     Route: 065
     Dates: start: 20140204

REACTIONS (4)
  - Chest discomfort [Recovering/Resolving]
  - Eyelid oedema [Recovering/Resolving]
  - Dizziness [Recovering/Resolving]
  - Headache [Recovering/Resolving]
